FAERS Safety Report 8864714 (Version 1)
Quarter: 2012Q4

REPORT INFORMATION
  Report Type: 
  Country: US (occurrence: US)
  Receive Date: 20121024
  Receipt Date: 20121024
  Transmission Date: 20130627
  Serious: No
  Sender: FDA-Public Use
  Company Number: US-AMGEN-USASP2011068960

PATIENT
  Sex: Female

DRUGS (2)
  1. ENBREL [Suspect]
     Indication: RHEUMATOID ARTHRITIS
     Dosage: 50 mg, qwk
     Dates: start: 20110119
  2. ENBREL [Suspect]
     Indication: PSORIASIS

REACTIONS (7)
  - Neck pain [Recovered/Resolved]
  - Local swelling [Recovered/Resolved]
  - Back pain [Recovered/Resolved]
  - Joint range of motion decreased [Recovered/Resolved]
  - Malaise [Recovered/Resolved]
  - Injection site pain [Recovered/Resolved]
  - Viral infection [Recovered/Resolved]
